FAERS Safety Report 8616179-1 (Version None)
Quarter: 2012Q3

REPORT INFORMATION
  Report Type: 
  Country: None (occurrence: None)
  Receive Date: 20120823
  Receipt Date: 20120815
  Transmission Date: 20120928
  Serious: Yes (Life-Threatening, Hospitalization, Disabling)
  Sender: FDA-Public Use
  Company Number: US-009507513-1208USA008339

PATIENT

DRUGS (7)
  1. FOSAMAX [Suspect]
     Indication: OSTEOPOROSIS
     Dosage: 70 MG, QW
     Route: 048
  2. JANUVIA [Concomitant]
     Route: 048
  3. METFORMIN HCL [Concomitant]
  4. EXELON [Concomitant]
  5. ASPIRIN [Concomitant]
     Dosage: UNK, QD
  6. PRAVACHOL [Concomitant]
  7. HYDRALAZINE HCL [Concomitant]

REACTIONS (4)
  - STOMATITIS [None]
  - MOUTH INJURY [None]
  - HYPERTENSIVE EMERGENCY [None]
  - DRUG ADMINISTRATION ERROR [None]
